FAERS Safety Report 8827666 (Version 2)
Quarter: 2012Q4

REPORT INFORMATION
  Report Type: 
  Country: TW (occurrence: TW)
  Receive Date: 20121005
  Receipt Date: 20121011
  Transmission Date: 20130627
  Serious: Yes (Other)
  Sender: FDA-Public Use
  Company Number: TW-JNJFOC-20121000995

PATIENT
  Age: 47 Year
  Sex: Female

DRUGS (2)
  1. REGAINE [Suspect]
     Indication: PRODUCT USED FOR UNKNOWN INDICATION
     Route: 061
     Dates: start: 2011
  2. REGAINE [Suspect]
     Indication: PRODUCT USED FOR UNKNOWN INDICATION
     Route: 061
     Dates: start: 201208

REACTIONS (3)
  - Hypothyroidism [Unknown]
  - Overdose [Unknown]
  - Alopecia [Recovering/Resolving]
